FAERS Safety Report 12682246 (Version 4)
Quarter: 2016Q4

REPORT INFORMATION
  Report Type: Spontaneous
  Country: US (occurrence: US)
  Receive Date: 20160824
  Receipt Date: 20161227
  Transmission Date: 20170207
  Serious: Yes (Other)
  Sender: FDA-Public Use
  Company Number: US-BAYER-2016-164451

PATIENT
  Age: 28 Year
  Sex: Female

DRUGS (7)
  1. EXCEDRIN [ACETYLSALICYLIC ACID,CAFFEINE,PARACETAMOL,SALICYLAMIDE] [Concomitant]
     Active Substance: ACETAMINOPHEN\ASPIRIN\CAFFEINE
  2. NORCO [Concomitant]
     Active Substance: ACETAMINOPHEN\HYDROCODONE BITARTRATE
  3. MIRENA [Suspect]
     Active Substance: LEVONORGESTREL
     Indication: CONTRACEPTION
  4. KEFLEX [Concomitant]
     Active Substance: CEPHALEXIN
  5. ULTRAM [Concomitant]
     Active Substance: TRAMADOL HYDROCHLORIDE
  6. MIRENA [Suspect]
     Active Substance: LEVONORGESTREL
     Indication: CONTRACEPTION
     Dosage: 20 MCG/24HR, CONT
     Route: 015
     Dates: start: 200906, end: 20140812
  7. IMPLANON [Concomitant]
     Active Substance: ETONOGESTREL

REACTIONS (9)
  - Migraine [None]
  - Depression [None]
  - Device dislocation [None]
  - Hepatic cyst [None]
  - Pain [None]
  - Device dislocation [None]
  - Uterine injury [None]
  - Acne cystic [None]
  - Overgrowth bacterial [None]

NARRATIVE: CASE EVENT DATE: 2009
